FAERS Safety Report 11460012 (Version 2)
Quarter: 2015Q3

REPORT INFORMATION
  Report Type: Spontaneous
  Country: GB (occurrence: GB)
  Receive Date: 20150904
  Receipt Date: 20150910
  Transmission Date: 20151125
  Serious: Yes (Death)
  Sender: FDA-Public Use
  Company Number: GB-PFIZER INC-2015283533

PATIENT
  Sex: Male
  Weight: 2.36 kg

DRUGS (4)
  1. PRIMIDONE. [Suspect]
     Active Substance: PRIMIDONE
     Indication: EPILEPSY
     Dosage: 1250 MG, DAILY
     Route: 064
  2. NYDRANE [Suspect]
     Active Substance: BECLAMIDE
     Indication: EPILEPSY
     Dosage: 3 G, DAILY
     Route: 064
  3. PHENYTOIN SODIUM. [Suspect]
     Active Substance: PHENYTOIN SODIUM
     Indication: EPILEPSY
     Dosage: 400 MG, DAILY
     Route: 064
  4. ETHOSUXIMIDE. [Suspect]
     Active Substance: ETHOSUXIMIDE
     Indication: EPILEPSY
     Dosage: 750 MG, DAILY
     Route: 064

REACTIONS (2)
  - Maternal exposure during pregnancy [Fatal]
  - Haemorrhage intracranial [Fatal]
